FAERS Safety Report 10654440 (Version 1)
Quarter: 2014Q4

REPORT INFORMATION
  Report Type: Spontaneous
  Country: US (occurrence: None)
  Receive Date: 20141215
  Receipt Date: 20141215
  Transmission Date: 20150529
  Serious: Yes (Hospitalization)
  Sender: FDA-Public Use
  Company Number: None

PATIENT
  Age: 46 Year
  Sex: Female

DRUGS (17)
  1. HYDROCODONE ACETAMINOPHEN [Concomitant]
     Active Substance: ACETAMINOPHEN\HYDROCODONE BITARTRATE
  2. PROCHLORPEARZINE [Concomitant]
  3. GABAPENTIN. [Concomitant]
     Active Substance: GABAPENTIN
  4. VENLAFAXINE [Concomitant]
     Active Substance: VENLAFAXINE HYDROCHLORIDE
  5. AFINITOR [Suspect]
     Active Substance: EVEROLIMUS
     Indication: BREAST CANCER
     Route: 048
     Dates: start: 20140425
  6. FAMOTIDINE. [Concomitant]
     Active Substance: FAMOTIDINE
  7. ONDANSETRON [Concomitant]
     Active Substance: ONDANSETRON
  8. DOCUSATE SODIUM. [Concomitant]
     Active Substance: DOCUSATE SODIUM
  9. DEXAMETHASONE. [Concomitant]
     Active Substance: DEXAMETHASONE
  10. POTASSIUM [Concomitant]
     Active Substance: POTASSIUM
  11. METHADONE [Concomitant]
     Active Substance: METHADONE HYDROCHLORIDE
  12. DOC Q LACE [Concomitant]
     Active Substance: DOCUSATE SODIUM
  13. DIAZEPAM. [Concomitant]
     Active Substance: DIAZEPAM
  14. CIPROFLOXACIN. [Concomitant]
     Active Substance: CIPROFLOXACIN
  15. MORPHINE SULFATE. [Concomitant]
     Active Substance: MORPHINE SULFATE
  16. ZOLPIDEM [Concomitant]
     Active Substance: ZOLPIDEM\ZOLPIDEM TARTRATE
  17. METRONIDAZOLE. [Concomitant]
     Active Substance: METRONIDAZOLE

REACTIONS (3)
  - Nausea [None]
  - Gastritis [None]
  - Therapeutic procedure [None]

NARRATIVE: CASE EVENT DATE: 20141031
